FAERS Safety Report 18516706 (Version 2)
Quarter: 2020Q4

REPORT INFORMATION
  Report Type: Spontaneous
  Country: US (occurrence: US)
  Receive Date: 20201118
  Receipt Date: 20201214
  Transmission Date: 20210114
  Serious: Yes (Hospitalization, Other)
  Sender: FDA-Public Use
  Company Number: US-009507513-2011USA010682

PATIENT
  Age: 82 Year
  Sex: Male
  Weight: 90 kg

DRUGS (17)
  1. MYRBETRIQ [Concomitant]
     Active Substance: MIRABEGRON
     Dosage: UNKNOWN
  2. VITAMIN E [Concomitant]
     Active Substance: .ALPHA.-TOCOPHEROL
     Dosage: UNKNOWN
  3. ROPINIROLE. [Suspect]
     Active Substance: ROPINIROLE
     Indication: PRODUCT USED FOR UNKNOWN INDICATION
     Dosage: 5 MILLIGRAM, TID
     Route: 065
     Dates: start: 20201007
  4. ATORVASTATIN [Concomitant]
     Active Substance: ATORVASTATIN
     Dosage: UNKNOWN
  5. TAMSULOSIN HYDROCHLORIDE. [Concomitant]
     Active Substance: TAMSULOSIN HYDROCHLORIDE
     Dosage: UNKNOWN
     Route: 065
  6. AMANTADINE HYDROCHLORIDE. [Concomitant]
     Active Substance: AMANTADINE HYDROCHLORIDE
     Dosage: UNKNOWN
  7. DULOXETINE HYDROCHLORIDE. [Concomitant]
     Active Substance: DULOXETINE HYDROCHLORIDE
     Dosage: CAPSULE, DELAYED RELEASE, UNKNOWN
  8. METOPROLOL TARTRATE. [Concomitant]
     Active Substance: METOPROLOL TARTRATE
     Dosage: UNKNOWN
  9. TORSEMIDE. [Concomitant]
     Active Substance: TORSEMIDE
     Dosage: UNKNOWN
  10. NUPLAZID [Suspect]
     Active Substance: PIMAVANSERIN TARTRATE
     Indication: HALLUCINATION
  11. FINASTERIDE. [Concomitant]
     Active Substance: FINASTERIDE
     Dosage: UNKNOWN
  12. VITAMIN C TOWA [Concomitant]
     Dosage: UNKNOWN
  13. NUPLAZID [Suspect]
     Active Substance: PIMAVANSERIN TARTRATE
     Indication: PARKINSON^S DISEASE
     Dosage: 34 MILLIGRAM, QD
     Route: 048
     Dates: start: 201906
  14. ASPIRIN. [Concomitant]
     Active Substance: ASPIRIN
     Dosage: UNKNOWN
  15. DONEPEZIL. [Concomitant]
     Active Substance: DONEPEZIL
     Dosage: UNKNOWN
  16. SINEMET [Suspect]
     Active Substance: CARBIDOPA\LEVODOPA
     Indication: PRODUCT USED FOR UNKNOWN INDICATION
     Dosage: UNK
     Route: 048
  17. ROPINIROLE. [Suspect]
     Active Substance: ROPINIROLE
     Dosage: 5 MILLIGRAM, QAM, 5 MG AFTERNOON, THEN 3 MG EVENING
     Route: 065
     Dates: start: 20201007

REACTIONS (15)
  - Mood swings [Unknown]
  - Parkinson^s disease [Unknown]
  - Rapid eye movement sleep behaviour disorder [Unknown]
  - Hallucination [Recovered/Resolved]
  - Back pain [Unknown]
  - Cerebral atrophy [Unknown]
  - Irritability [Recovered/Resolved]
  - Rash [Unknown]
  - Hypersomnia [Unknown]
  - Delusion [Recovered/Resolved]
  - Anger [Unknown]
  - Fluid retention [Unknown]
  - Hallucination, visual [Recovered/Resolved]
  - Cerebrovascular disorder [Unknown]
  - Dizziness postural [Unknown]

NARRATIVE: CASE EVENT DATE: 20190921
